FAERS Safety Report 10023927 (Version 2)
Quarter: 2014Q1

REPORT INFORMATION
  Report Type: Spontaneous
  Country: US (occurrence: None)
  Receive Date: 20140318
  Receipt Date: 20140328
  Transmission Date: 20141002
  Serious: Yes (Hospitalization)
  Sender: FDA-Public Use
  Company Number: 2014-US-002870

PATIENT
  Age: 36 Year
  Sex: Male

DRUGS (8)
  1. XYREM [Suspect]
     Indication: NARCOLEPSY
     Route: 048
     Dates: start: 200806, end: 2008
  2. BUTRANS [Suspect]
     Indication: PRODUCT USED FOR UNKNOWN INDICATION
     Dosage: UNK, UNKNOWN, UNK
     Route: 062
  3. LORTAB (HYDROCODONE BITARETRATE, PARACETAMOL) [Concomitant]
  4. LYRICA (PREGABALIN) [Concomitant]
  5. MODAFINIL (MODAFINIL) [Concomitant]
  6. TIZANIDINE (TIZANIDINE) [Concomitant]
  7. PRILOSEC (OMEPRAZOLE MAGNESIUM) [Concomitant]
  8. MELOXICAM (MELOXICAM) [Concomitant]

REACTIONS (5)
  - Fall [None]
  - Chest pain [None]
  - Rhabdomyolysis [None]
  - Renal failure acute [None]
  - Cyst [None]
